FAERS Safety Report 6939305-9 (Version None)
Quarter: 2010Q3

REPORT INFORMATION
  Report Type: 
  Country: None (occurrence: None)
  Receive Date: 20100824
  Receipt Date: 20100819
  Transmission Date: 20110219
  Serious: Yes (Hospitalization)
  Sender: FDA-Public Use
  Company Number: FR-KINGPHARMUSA00001-K201001057

PATIENT
  Age: 73 Year
  Sex: Male

DRUGS (10)
  1. ALTACE [Suspect]
     Dosage: 2.5 MG, QD
     Route: 048
     Dates: start: 20090601, end: 20100504
  2. COAPROVEL [Suspect]
     Dosage: 150/12.5 MG, QD
     Route: 048
     Dates: start: 20090101
  3. LACEROL [Concomitant]
     Dosage: 120 MG, QD
     Route: 048
  4. MANIDIPINE HYDROCHLORIDE [Concomitant]
     Dosage: 20 MG, QD
     Route: 048
  5. EMCONCOR COR [Concomitant]
     Dosage: 2.5 MG, QD
     Route: 048
  6. CARDYL [Concomitant]
     Dosage: 40 MG, QD
     Route: 048
  7. CARDURA [Concomitant]
     Dosage: 4 MG, QD
     Route: 048
  8. ISCOVER [Concomitant]
     Dosage: 75 MG, QD
     Route: 048
  9. HEMOVAS [Concomitant]
     Dosage: 600 MG, BID
     Route: 048
  10. HUMALOG MIX [Concomitant]
     Dosage: 10 IU, BID
     Route: 058
     Dates: end: 20100504

REACTIONS (4)
  - BRADYCARDIA [None]
  - CARDIAC OUTPUT DECREASED [None]
  - HYPERKALAEMIA [None]
  - RENAL FAILURE ACUTE [None]
